FAERS Safety Report 9219182 (Version 1)
Quarter: 2013Q2

REPORT INFORMATION
  Report Type: Spontaneous
  Country: US (occurrence: US)
  Receive Date: 20130409
  Receipt Date: 20130409
  Transmission Date: 20140414
  Serious: No
  Sender: FDA-Public Use
  Company Number: US-VERTEX PHARMACEUTICALS INC.-2013-004502

PATIENT
  Age: 27 Year
  Sex: Female
  Weight: 74 kg

DRUGS (3)
  1. INCIVEK [Suspect]
     Indication: HEPATITIS C
     Dosage: 750 MG, TID
     Route: 048
     Dates: start: 201302
  2. RIBAVIRIN [Suspect]
     Indication: HEPATITIS C
     Dosage: 3 IN AM, 2 IN PM
     Dates: start: 201302
  3. PEGASYS [Suspect]
     Indication: HEPATITIS C
     Dosage: 180 ?G, WEEKLY
     Route: 058
     Dates: start: 201302

REACTIONS (7)
  - Dyspnoea [Recovered/Resolved]
  - Pyrexia [Not Recovered/Not Resolved]
  - Weight increased [Recovered/Resolved]
  - Fatigue [Recovered/Resolved]
  - Rash erythematous [Not Recovered/Not Resolved]
  - Haematocrit decreased [Recovered/Resolved]
  - Haemoglobin decreased [Recovered/Resolved]
